FAERS Safety Report 9776556 (Version 1)
Quarter: 2013Q4

REPORT INFORMATION
  Report Type: Spontaneous
  Country: US (occurrence: US)
  Receive Date: 20131220
  Receipt Date: 20131220
  Transmission Date: 20140711
  Serious: No
  Sender: FDA-Public Use
  Company Number: US-BIOGENIDEC-2013BI118833

PATIENT
  Age: 62 Year
  Sex: Female

DRUGS (24)
  1. TECFIDERA [Suspect]
     Indication: MULTIPLE SCLEROSIS
     Route: 048
     Dates: start: 20131015
  2. TECFIDERA [Suspect]
     Indication: MULTIPLE SCLEROSIS
     Route: 048
  3. TECFIDERA [Suspect]
     Indication: MULTIPLE SCLEROSIS
     Route: 048
     Dates: start: 20131115
  4. TEGRETOL [Concomitant]
  5. ESTRADIOL [Concomitant]
  6. ZINC [Concomitant]
  7. CALCIUM [Concomitant]
  8. CARDIZEM [Concomitant]
  9. VITAMIN C [Concomitant]
  10. CENTRUM SILVER [Concomitant]
  11. CALTRATE D [Concomitant]
  12. LUMIGAN [Concomitant]
  13. ONDANSETRON [Concomitant]
  14. DILTIAZEM [Concomitant]
  15. DICYCLOMINE [Concomitant]
  16. FLUOCINONIDE [Concomitant]
  17. DESOXIMETASONE [Concomitant]
  18. CARBAMAZEPINE [Concomitant]
  19. LEVOFLOXACIN [Concomitant]
  20. HYDROCODONE [Concomitant]
  21. BENZONATATE [Concomitant]
  22. AZITHROMYCIN [Concomitant]
  23. VENTOLIN [Concomitant]
  24. DENAVIR [Concomitant]

REACTIONS (6)
  - Underdose [Unknown]
  - Somnolence [Not Recovered/Not Resolved]
  - Asthenia [Not Recovered/Not Resolved]
  - Dehydration [Not Recovered/Not Resolved]
  - Gastritis [Not Recovered/Not Resolved]
  - Vomiting [Not Recovered/Not Resolved]
